FAERS Safety Report 8448115-5 (Version None)
Quarter: 2012Q2

REPORT INFORMATION
  Report Type: 
  Country: None (occurrence: None)
  Receive Date: 20120619
  Receipt Date: 20120613
  Transmission Date: 20120825
  Serious: Yes (Hospitalization)
  Sender: FDA-Public Use
  Company Number: US-ALEXION-A201200258

PATIENT
  Sex: Male
  Weight: 92 kg

DRUGS (7)
  1. HYDROCORTISONE [Concomitant]
     Dosage: 15 MG QAM, 10 MG QPM
     Dates: start: 20111212
  2. EXJADE [Concomitant]
     Indication: CHELATION THERAPY
     Dosage: 2000 MG, QD
     Route: 048
     Dates: start: 20120109
  3. FOLIC ACID [Concomitant]
     Dosage: 1 MG, QD
     Route: 048
  4. TESTOSTERONE [Concomitant]
     Dosage: 2, QD
     Route: 062
     Dates: start: 20120316
  5. SOLIRIS [Suspect]
     Indication: PAROXYSMAL NOCTURNAL HAEMOGLOBINURIA
     Dosage: 900 MG, Q2W
     Route: 042
  6. PROTONIX [Concomitant]
     Dosage: 40 MG, QD
     Route: 048
  7. TESTOSTERONE [Concomitant]
     Dosage: 1 PUMP UNDER ARM, QD
     Route: 062

REACTIONS (8)
  - CONDITION AGGRAVATED [None]
  - MUSCULOSKELETAL CHEST PAIN [None]
  - FATIGUE [None]
  - EXTRAVASCULAR HAEMOLYSIS [None]
  - JAUNDICE [None]
  - APLASTIC ANAEMIA [None]
  - CHOLECYSTITIS [None]
  - BLOOD BILIRUBIN ABNORMAL [None]
